FAERS Safety Report 17881925 (Version 1)
Quarter: 2020Q2

REPORT INFORMATION
  Report Type: Report from Study
  Country: IT (occurrence: IT)
  Receive Date: 20200610
  Receipt Date: 20200610
  Transmission Date: 20200714
  Serious: Yes (Hospitalization)
  Sender: FDA-Public Use
  Company Number: IT-MYLANLABS-2020M1055304

PATIENT
  Age: 84 Year
  Sex: Male

DRUGS (2)
  1. TICLOPIDINE [Suspect]
     Active Substance: TICLOPIDINE
     Indication: PROPHYLAXIS
     Dosage: 1 DOSAGE FORM, QD
     Route: 048
     Dates: end: 20200424
  2. ENOXAPARIN [Interacting]
     Active Substance: ENOXAPARIN
     Indication: PROPHYLAXIS
     Dosage: 1 DOSAGE FORM, QD
     Route: 058
     Dates: end: 20200424

REACTIONS (3)
  - Haematoma muscle [Recovering/Resolving]
  - Drug interaction [Recovering/Resolving]
  - Anaemia [Recovering/Resolving]

NARRATIVE: CASE EVENT DATE: 20200423
